FAERS Safety Report 18444892 (Version 2)
Quarter: 2023Q4

REPORT INFORMATION
  Report Type: Report from Study
  Country: US (occurrence: US)
  Receive Date: 20201030
  Receipt Date: 20231213
  Transmission Date: 20240110
  Serious: Yes (Other)
  Sender: FDA-Public Use
  Company Number: US-GW PHARMA-202010USGW03688

PATIENT

DRUGS (7)
  1. EPIDIOLEX [Suspect]
     Active Substance: CANNABIDIOL
     Indication: Partial seizures
     Dosage: 200 MILLIGRAM, BID
     Route: 048
     Dates: start: 20200218
  2. EPIDIOLEX [Suspect]
     Active Substance: CANNABIDIOL
     Indication: Epilepsy
     Dosage: 1 MILLILITER, BID
     Route: 048
  3. EPIDIOLEX [Suspect]
     Active Substance: CANNABIDIOL
     Indication: Focal dyscognitive seizures
  4. DEPAKOTE [Concomitant]
     Active Substance: DIVALPROEX SODIUM
  5. CLOBAZAM [Concomitant]
     Active Substance: CLOBAZAM
  6. KEPPRA EBB [Concomitant]
  7. LORAZEPAM [Concomitant]
     Active Substance: LORAZEPAM

REACTIONS (5)
  - Surgery [Unknown]
  - Seizure [Not Recovered/Not Resolved]
  - Stress [Not Recovered/Not Resolved]
  - Product use in unapproved indication [Unknown]
  - Liquid product physical issue [Unknown]

NARRATIVE: CASE EVENT DATE: 20200901
